FAERS Safety Report 8031996-7 (Version None)
Quarter: 2012Q1

REPORT INFORMATION
  Report Type: 
  Country: None (occurrence: None)
  Receive Date: 20120109
  Receipt Date: 20110531
  Transmission Date: 20120608
  Serious: No
  Sender: FDA-Public Use
  Company Number: US-ABBOTT-11P-163-0730000-00

PATIENT
  Sex: Female
  Weight: 56.296 kg

DRUGS (4)
  1. COMPOUNDED NATURAL HORMONES [Concomitant]
     Indication: PRODUCT USED FOR UNKNOWN INDICATION
  2. VICODIN [Suspect]
     Indication: BACK PAIN
     Dates: start: 20110528, end: 20110528
  3. VICODIN [Suspect]
  4. ZOMIG [Concomitant]
     Indication: PRODUCT USED FOR UNKNOWN INDICATION

REACTIONS (5)
  - HYPOTHYROIDISM [None]
  - DRUG INEFFECTIVE [None]
  - MIDDLE INSOMNIA [None]
  - PALPITATIONS [None]
  - PAIN [None]
